FAERS Safety Report 6781561-4 (Version None)
Quarter: 2010Q2

REPORT INFORMATION
  Report Type: 
  Country: None (occurrence: None)
  Receive Date: 20100621
  Receipt Date: 20100609
  Transmission Date: 20101027
  Serious: Yes (Hospitalization)
  Sender: FDA-Public Use
  Company Number: US-WYE-H15583610

PATIENT
  Sex: Male

DRUGS (1)
  1. EFFEXOR [Suspect]

REACTIONS (1)
  - NONSPECIFIC REACTION [None]
